FAERS Safety Report 22311859 (Version 1)
Quarter: 2023Q2

REPORT INFORMATION
  Report Type: Spontaneous
  Country: GB (occurrence: GB)
  Receive Date: 20230512
  Receipt Date: 20230512
  Transmission Date: 20230721
  Serious: Yes (Other)
  Sender: FDA-Public Use
  Company Number: GB-MACLEODS PHARMACEUTICALS US LTD-MAC2023041209

PATIENT

DRUGS (4)
  1. VENLAFAXINE [Suspect]
     Active Substance: VENLAFAXINE HYDROCHLORIDE
     Indication: Schizophrenia
     Dosage: UNK
     Route: 065
  2. VENLAFAXINE [Suspect]
     Active Substance: VENLAFAXINE HYDROCHLORIDE
     Dosage: 125 MILLIGRAM, INCREASED DOSE, MODIFIED RELEASE
     Route: 065
  3. QUETIAPINE [Concomitant]
     Active Substance: QUETIAPINE
     Indication: Schizophrenia
     Dosage: 400 MILLIGRAM, QD, MODIFIED RELEASE
     Route: 065
  4. QUETIAPINE [Concomitant]
     Active Substance: QUETIAPINE
     Dosage: 300 MILLIGRAM, QD, MODIFIED RELEASE
     Route: 065

REACTIONS (2)
  - Postural orthostatic tachycardia syndrome [Recovering/Resolving]
  - Condition aggravated [Recovering/Resolving]
